FAERS Safety Report 24543791 (Version 1)
Quarter: 2024Q4

REPORT INFORMATION
  Report Type: Spontaneous
  Country: US (occurrence: US)
  Receive Date: 20241024
  Receipt Date: 20241024
  Transmission Date: 20250114
  Serious: No
  Sender: AMGEN
  Company Number: US-AMGEN-USASP2024209354

PATIENT
  Sex: Female

DRUGS (2)
  1. TEPEZZA [Suspect]
     Active Substance: TEPROTUMUMAB-TRBW
     Indication: Product used for unknown indication
     Dosage: UNK
     Route: 040
  2. TEPEZZA [Suspect]
     Active Substance: TEPROTUMUMAB-TRBW
     Dosage: UNK, LAST INFUSION
     Route: 040
     Dates: start: 20240923, end: 20240923

REACTIONS (9)
  - Diplopia [Not Recovered/Not Resolved]
  - Alopecia [Unknown]
  - Dry skin [Unknown]
  - Onychoclasis [Unknown]
  - Muscle spasms [Unknown]
  - Blood glucose increased [Unknown]
  - Fatigue [Unknown]
  - Dysgeusia [Unknown]
  - Weight decreased [Unknown]
